FAERS Safety Report 7137903-3 (Version None)
Quarter: 2010Q4

REPORT INFORMATION
  Report Type: 
  Country: None (occurrence: None)
  Receive Date: 20101118
  Receipt Date: 20101103
  Transmission Date: 20110411
  Serious: Yes (Hospitalization)
  Sender: FDA-Public Use
  Company Number: DSJ-2010-19893

PATIENT
  Sex: Male

DRUGS (2)
  1. BENICAR HCT [Suspect]
     Indication: HYPERTENSION
     Dosage: 80/50 MG (2 IN 1 D), PER ORAL
     Route: 048
     Dates: start: 20070101, end: 20100101
  2. METFORMIN HCL [Concomitant]

REACTIONS (6)
  - ANGIOPLASTY [None]
  - BLOOD PRESSURE INCREASED [None]
  - CATHETER PLACEMENT [None]
  - DRUG INEFFECTIVE [None]
  - OVERDOSE [None]
  - STENT PLACEMENT [None]
